FAERS Safety Report 15966171 (Version 1)
Quarter: 2019Q1

REPORT INFORMATION
  Report Type: Spontaneous
  Country: US (occurrence: US)
  Receive Date: 20190215
  Receipt Date: 20190215
  Transmission Date: 20190418
  Serious: Yes (Hospitalization)
  Sender: FDA-Public Use
  Company Number: US-ROCHE-2263401

PATIENT
  Age: 78 Year
  Sex: Male

DRUGS (2)
  1. ACTILYSE [Suspect]
     Active Substance: ALTEPLASE
     Indication: INFECTIOUS PLEURAL EFFUSION
     Route: 034
  2. DORNASE ALFA. [Suspect]
     Active Substance: DORNASE ALFA
     Indication: INFECTIOUS PLEURAL EFFUSION
     Route: 034

REACTIONS (6)
  - Intentional product use issue [Unknown]
  - Haemoptysis [Recovering/Resolving]
  - Off label use [Unknown]
  - Chest pain [Recovering/Resolving]
  - Respiratory failure [Recovering/Resolving]
  - Pulmonary alveolar haemorrhage [Recovering/Resolving]
